FAERS Safety Report 5266999-9 (Version None)
Quarter: 2007Q1

REPORT INFORMATION
  Report Type: 
  Country: None (occurrence: None)
  Receive Date: 20070313
  Receipt Date: 20070301
  Transmission Date: 20070707
  Serious: Yes (Death, Hospitalization)
  Sender: FDA-Public Use
  Company Number: 2006-03015

PATIENT
  Age: 82 Year
  Sex: Male
  Weight: 78.5 kg

DRUGS (27)
  1. VELCADE [Suspect]
     Indication: MULTIPLE MYELOMA
     Dosage: 1.90 MG,INTRAVENOUS
     Route: 042
     Dates: start: 20060612, end: 20061109
  2. MELPHALAN (MELPHALAN) VIAL [Suspect]
     Indication: MULTIPLE MYELOMA
     Dosage: 8.00 MG ORAL
     Route: 048
     Dates: start: 20060612, end: 20061102
  3. ASCORBIC ACID [Suspect]
     Indication: MULTIPLE MYELOMA
  4. LASIX [Concomitant]
  5. MICRO-K (POTASSIUM CHLORIDE) [Concomitant]
  6. DURAGESIC-100 [Concomitant]
  7. ZOFRAN [Concomitant]
  8. ZOMETA [Concomitant]
  9. PROCRIT [Concomitant]
  10. ADVAIR DISKUS (FLUTICASONE PROPIONATE, SALMETEROL XINAFOATE) [Concomitant]
  11. PROPECIA [Concomitant]
  12. OMEPRAZOLE [Concomitant]
  13. ATENOLOL [Concomitant]
  14. LIPITOR [Concomitant]
  15. ASPIRIN [Concomitant]
  16. OXYGEN (OXYGEN) [Concomitant]
  17. NORCO [Concomitant]
  18. MILK OF MAGNESIA TAB [Concomitant]
  19. SENOKOT [Concomitant]
  20. MEGACE [Concomitant]
  21. LIDODERM (LIDOCAINE) PATCH [Concomitant]
  22. STEROID EYE DROPS EYE DROPS [Concomitant]
  23. LYRICA [Concomitant]
  24. TYLENOL [Concomitant]
  25. PREDNISOLONE (PREDNISOLONE) EYE DROPS [Concomitant]
  26. ATIVAN [Concomitant]
  27. DULCOLAX (BISACODYL) SUPPOSITORY [Concomitant]

REACTIONS (16)
  - ATRIAL FIBRILLATION [None]
  - CARDIAC FAILURE CONGESTIVE [None]
  - CHRONIC OBSTRUCTIVE PULMONARY DISEASE [None]
  - CONDITION AGGRAVATED [None]
  - GENERAL PHYSICAL HEALTH DETERIORATION [None]
  - HYPERLIPIDAEMIA [None]
  - MENTAL STATUS CHANGES [None]
  - MULTIPLE MYELOMA [None]
  - PANCYTOPENIA [None]
  - PLEURAL EFFUSION [None]
  - PULMONARY OEDEMA [None]
  - REFUSAL OF TREATMENT BY PATIENT [None]
  - RENAL FAILURE ACUTE [None]
  - RESPIRATORY FAILURE [None]
  - ROAD TRAFFIC ACCIDENT [None]
  - TREATMENT NONCOMPLIANCE [None]
